FAERS Safety Report 15083432 (Version 1)
Quarter: 2018Q2

REPORT INFORMATION
  Report Type: Spontaneous
  Country: FR (occurrence: FR)
  Receive Date: 20180628
  Receipt Date: 20180628
  Transmission Date: 20180711
  Serious: Yes (Other)
  Sender: FDA-Public Use
  Company Number: FR-TEVA-2018-FR-914929

PATIENT
  Age: 59 Year
  Sex: Female

DRUGS (1)
  1. ESOMEPRAZOLE [Suspect]
     Active Substance: ESOMEPRAZOLE
     Indication: PROPHYLAXIS AGAINST GASTROINTESTINAL ULCER
     Dosage: 40 MILLIGRAM DAILY;
     Route: 048
     Dates: start: 2018, end: 2018

REACTIONS (1)
  - Subacute cutaneous lupus erythematosus [Recovered/Resolved]

NARRATIVE: CASE EVENT DATE: 2018
